FAERS Safety Report 20127597 (Version 1)
Quarter: 2021Q4

REPORT INFORMATION
  Report Type: Spontaneous
  Country: MY (occurrence: MY)
  Receive Date: 20211129
  Receipt Date: 20211129
  Transmission Date: 20220303
  Serious: Yes (Other)
  Sender: FDA-Public Use
  Company Number: MY-BoehringerIngelheim-2021-BI-139829

PATIENT
  Sex: Male

DRUGS (5)
  1. GILOTRIF [Suspect]
     Active Substance: AFATINIB
     Indication: EGFR gene mutation
     Dates: start: 2016
  2. GILOTRIF [Suspect]
     Active Substance: AFATINIB
     Indication: Non-small cell lung cancer
  3. GILOTRIF [Suspect]
     Active Substance: AFATINIB
  4. GILOTRIF [Suspect]
     Active Substance: AFATINIB
     Dosage: 20MG EOD (EVERY OTHER DAY)
  5. GILOTRIF [Suspect]
     Active Substance: AFATINIB

REACTIONS (3)
  - Disease progression [Unknown]
  - Rash [Unknown]
  - Paronychia [Unknown]
